FAERS Safety Report 8100978-9 (Version None)
Quarter: 2012Q1

REPORT INFORMATION
  Report Type: 
  Country: None (occurrence: None)
  Receive Date: 20120129
  Receipt Date: 20111122
  Transmission Date: 20120608
  Serious: No
  Sender: FDA-Public Use
  Company Number: US-ABBOTT-11P-163-0877056-00

PATIENT
  Age: 51 Year
  Sex: Female

DRUGS (7)
  1. FLEXERIL [Concomitant]
     Indication: ARTHRALGIA
  2. OMEPRAZOLE [Concomitant]
     Indication: GASTROOESOPHAGEAL REFLUX DISEASE
  3. DICLOFENAC [Concomitant]
     Indication: ARTHRALGIA
  4. MORPHINE SULFATE [Concomitant]
     Indication: ARTHRALGIA
     Dosage: DAILY
  5. TYLENOL-500 [Concomitant]
     Indication: PRODUCT USED FOR UNKNOWN INDICATION
     Dosage: DAILY
  6. PREMPRO [Concomitant]
     Indication: PREMATURE MENOPAUSE
     Dosage: 0.625/5 MG
  7. HUMIRA [Suspect]
     Indication: RHEUMATOID ARTHRITIS
     Dates: start: 20111012

REACTIONS (2)
  - THROAT IRRITATION [None]
  - RHINORRHOEA [None]
